FAERS Safety Report 15562900 (Version 2)
Quarter: 2018Q4

REPORT INFORMATION
  Report Type: Spontaneous
  Country: US (occurrence: US)
  Receive Date: 20181029
  Receipt Date: 20181128
  Transmission Date: 20190205
  Serious: Yes (Death, Life-Threatening, Hospitalization)
  Sender: FDA-Public Use
  Company Number: PHEH2018US045552

PATIENT
  Age: 12 Year
  Sex: Female
  Weight: 69 kg

DRUGS (6)
  1. KYMRIAH [Suspect]
     Active Substance: TISAGENLECLEUCEL
     Indication: ACUTE LYMPHOCYTIC LEUKAEMIA
     Dosage: 1.6 X 10^8 CAR-POSITVE VIABLE CELLS
     Route: 042
     Dates: start: 20181015
  2. PANTOPRAZOLE [Concomitant]
     Active Substance: PANTOPRAZOLE
     Indication: PROPHYLAXIS
     Dosage: 40 MG, QD
     Route: 048
     Dates: start: 20181016, end: 20181023
  3. LEVETIRACETAM. [Concomitant]
     Active Substance: LEVETIRACETAM
     Indication: SEIZURE PROPHYLAXIS
     Dosage: 500 MG, BID
     Route: 048
     Dates: start: 20181009, end: 20181019
  4. FLUDARABINE [Concomitant]
     Active Substance: FLUDARABINE PHOSPHATE
     Indication: PRODUCT USED FOR UNKNOWN INDICATION
     Dosage: 30MG/M2=47MG
     Route: 042
     Dates: start: 20181009, end: 20181012
  5. CYCLOPHOSPHAMIDE. [Concomitant]
     Active Substance: CYCLOPHOSPHAMIDE
     Dosage: 500MG/M2=800MG
     Route: 042
     Dates: start: 20181009, end: 20181010
  6. ACYCLOVIR. [Concomitant]
     Active Substance: ACYCLOVIR
     Indication: PROPHYLAXIS
     Dosage: 400 MG, BID
     Route: 048
     Dates: start: 20181016, end: 20181022

REACTIONS (16)
  - Cytokine release syndrome [Not Recovered/Not Resolved]
  - Headache [Unknown]
  - Tachypnoea [Unknown]
  - Nodal rhythm [Unknown]
  - Ventricular tachycardia [Unknown]
  - Tachycardia [Unknown]
  - Pallor [Unknown]
  - Stenotrophomonas infection [Fatal]
  - Hypotension [Unknown]
  - Disseminated intravascular coagulation [Fatal]
  - Body temperature increased [Unknown]
  - Tremor [Unknown]
  - Sepsis [Fatal]
  - Arrhythmia [Recovered/Resolved]
  - Neurotoxicity [Unknown]
  - Pyrexia [Unknown]

NARRATIVE: CASE EVENT DATE: 20181016
